FAERS Safety Report 5845773-6 (Version None)
Quarter: 2008Q3

REPORT INFORMATION
  Report Type: 
  Country: None (occurrence: None)
  Receive Date: 20080814
  Receipt Date: 20080730
  Transmission Date: 20090109
  Serious: No
  Sender: FDA-Public Use
  Company Number: US-BOEHRINGER INGELHEIM GMBH, GERMANY-2008-BP-11973BP

PATIENT
  Age: 80 Year
  Sex: Male

DRUGS (1)
  1. FLOMAX [Suspect]
     Dates: start: 20080725

REACTIONS (2)
  - DRUG INEFFECTIVE [None]
  - URINARY TRACT DISORDER [None]
